FAERS Safety Report 10162192 (Version 1)
Quarter: 2014Q2

REPORT INFORMATION
  Report Type: Spontaneous
  Country: US (occurrence: None)
  Receive Date: 20140508
  Receipt Date: 20140508
  Transmission Date: 20141212
  Serious: Yes (Other)
  Sender: FDA-Public Use
  Company Number: None

PATIENT
  Age: 1 Year
  Sex: Female
  Weight: 9.03 kg

DRUGS (1)
  1. HYLANDS TEETHING TABLETS [Suspect]
     Indication: TEETHING
     Dosage: AS DIRECTED, PRN/AS NEEDED, ORAL
     Route: 048
     Dates: start: 20130919, end: 20130926

REACTIONS (5)
  - Convulsion [None]
  - Staring [None]
  - Unresponsive to stimuli [None]
  - Vomiting [None]
  - Fatigue [None]
